FAERS Safety Report 7247753-5 (Version None)
Quarter: 2011Q1

REPORT INFORMATION
  Report Type: 
  Country: None (occurrence: None)
  Receive Date: 20110127
  Receipt Date: 20110119
  Transmission Date: 20110831
  Serious: Yes (Other)
  Sender: FDA-Public Use
  Company Number: SE-JNJFOC-20110105546

PATIENT
  Age: 36 Year
  Sex: Female
  Weight: 53 kg

DRUGS (5)
  1. FLAGYL [Concomitant]
  2. IMODIUM [Concomitant]
     Route: 048
  3. AZATHIOPRINE [Concomitant]
     Route: 048
  4. REMICADE [Suspect]
     Indication: CROHN'S DISEASE
     Route: 042
  5. AMIAS [Concomitant]
     Route: 048

REACTIONS (8)
  - MYALGIA [None]
  - SWELLING FACE [None]
  - MUSCULOSKELETAL STIFFNESS [None]
  - ARTHRALGIA [None]
  - RASH [None]
  - OCULAR HYPERAEMIA [None]
  - THERAPEUTIC RESPONSE DECREASED [None]
  - GAIT DISTURBANCE [None]
